FAERS Safety Report 4677805-5 (Version None)
Quarter: 2005Q2

REPORT INFORMATION
  Report Type: 
  Country: None (occurrence: None)
  Receive Date: 20050531
  Receipt Date: 20050516
  Transmission Date: 20051028
  Serious: Yes (Hospitalization, Disabling)
  Sender: FDA-Public Use
  Company Number: US-JNJFOC-20041201210

PATIENT
  Sex: Female
  Weight: 20.5 kg

DRUGS (3)
  1. MOTRIN [Suspect]
     Route: 049
  2. MOTRIN [Suspect]
     Route: 049
  3. VITAMINS [Concomitant]

REACTIONS (9)
  - BLINDNESS [None]
  - CONJUNCTIVAL HAEMORRHAGE [None]
  - CONJUNCTIVITIS [None]
  - HEART RATE INCREASED [None]
  - HERPES ZOSTER [None]
  - HERPETIC GINGIVOSTOMATITIS [None]
  - PHOTOSENSITIVITY REACTION [None]
  - STEVENS-JOHNSON SYNDROME [None]
  - VAGINITIS VIRAL [None]
